FAERS Safety Report 4384404-1 (Version None)
Quarter: 2004Q2

REPORT INFORMATION
  Report Type: 
  Country: None (occurrence: None)
  Receive Date: 20040624
  Receipt Date: 20040211
  Transmission Date: 20050107
  Serious: Yes (Death)
  Sender: FDA-Public Use
  Company Number: US-GLAXOSMITHKLINE-A0497831A

PATIENT
  Age: 13 Year
  Sex: Male
  Weight: 75.9 kg

DRUGS (1)
  1. PAXIL CR [Suspect]
     Indication: INTERMITTENT EXPLOSIVE DISORDER
     Dosage: 12.5MG PER DAY
     Route: 048
     Dates: start: 20030109, end: 20030325

REACTIONS (2)
  - ABNORMAL BEHAVIOUR [None]
  - COMPLETED SUICIDE [None]
